FAERS Safety Report 16724420 (Version 2)
Quarter: 2019Q4

REPORT INFORMATION
  Report Type: Spontaneous
  Country: IN (occurrence: IN)
  Receive Date: 20190821
  Receipt Date: 20191209
  Transmission Date: 20200122
  Serious: Yes (Other)
  Sender: FDA-Public Use
  Company Number: IN-PFIZER INC-2019105741

PATIENT
  Age: 58 Year
  Sex: Male

DRUGS (1)
  1. SUTENT [Suspect]
     Active Substance: SUNITINIB MALATE
     Indication: METASTATIC RENAL CELL CARCINOMA
     Dosage: 50 MG, CYCLIC (ONCE DAILY, 14 DAYS ON AND 7 DAYS OFF)
     Route: 048
     Dates: start: 20190203

REACTIONS (2)
  - Neoplasm progression [Unknown]
  - Hemiparesis [Unknown]

NARRATIVE: CASE EVENT DATE: 201905
